FAERS Safety Report 6505812-6 (Version None)
Quarter: 2009Q4

REPORT INFORMATION
  Report Type: 
  Country: None (occurrence: None)
  Receive Date: 20091217
  Receipt Date: 20091217
  Transmission Date: 20100525
  Serious: Yes (Hospitalization)
  Sender: FDA-Public Use
  Company Number: None

PATIENT
  Sex: Female
  Weight: 93.8946 kg

DRUGS (1)
  1. REVLIMID [Suspect]
     Indication: NON-HODGKIN'S LYMPHOMA
     Dosage: 10 MG D1-21 PO CURRENT IN CYCLE #19
     Route: 048
     Dates: start: 20091209, end: 20091209

REACTIONS (5)
  - FALL [None]
  - MULTIPLE FRACTURES [None]
  - PATELLA FRACTURE [None]
  - RADIUS FRACTURE [None]
  - WRIST FRACTURE [None]
